FAERS Safety Report 14531408 (Version 1)
Quarter: 2018Q1

REPORT INFORMATION
  Report Type: Spontaneous
  Country: US (occurrence: US)
  Receive Date: 20180213
  Receipt Date: 20180213
  Transmission Date: 20180509
  Serious: Yes (Hospitalization)
  Sender: FDA-Public Use
  Company Number: None

PATIENT
  Age: 93 Year
  Sex: Male
  Weight: 93 kg

DRUGS (13)
  1. POTASSIUM [Concomitant]
     Active Substance: POTASSIUM
  2. CITALOPRAM [Concomitant]
     Active Substance: CITALOPRAM HYDROBROMIDE
  3. RUXOLITINIB [Suspect]
     Active Substance: RUXOLITINIB
     Indication: CHRONIC LEUKAEMIA
     Route: 048
     Dates: start: 20150311
  4. ALLOPURINOL. [Concomitant]
     Active Substance: ALLOPURINOL
  5. DOCUSATE CALCIUM. [Concomitant]
     Active Substance: DOCUSATE CALCIUM
  6. METOPROLOL. [Concomitant]
     Active Substance: METOPROLOL
  7. AMLODIPINE [Concomitant]
     Active Substance: AMLODIPINE BESYLATE
  8. VITAMIN D [Concomitant]
     Active Substance: CHOLECALCIFEROL
  9. DONEPEZIL. [Concomitant]
     Active Substance: DONEPEZIL
  10. GABAPENTIN. [Concomitant]
     Active Substance: GABAPENTIN
  11. CENTRUM [Concomitant]
     Active Substance: VITAMINS
  12. ASA [Concomitant]
     Active Substance: ASPIRIN
  13. HYDROCODONE-ACETAMINOPHEN [Concomitant]
     Active Substance: ACETAMINOPHEN\HYDROCODONE

REACTIONS (2)
  - Condition aggravated [None]
  - Cardiac failure congestive [None]

NARRATIVE: CASE EVENT DATE: 20170904
